FAERS Safety Report 19236091 (Version 1)
Quarter: 2021Q2

REPORT INFORMATION
  Report Type: Spontaneous
  Country: US (occurrence: US)
  Receive Date: 20210510
  Receipt Date: 20210510
  Transmission Date: 20210717
  Serious: No
  Sender: FDA-Public Use
  Company Number: US-009507513-2104USA004719

PATIENT
  Age: 66 Year
  Sex: Female

DRUGS (2)
  1. ALBUTEROL SULFATE. [Suspect]
     Active Substance: ALBUTEROL SULFATE
     Indication: CHRONIC OBSTRUCTIVE PULMONARY DISEASE
     Dosage: 2 PUFFS, FOUR TIMES A DAY
     Dates: start: 20210417
  2. ALBUTEROL SULFATE. [Suspect]
     Active Substance: ALBUTEROL SULFATE
     Indication: ASTHMA

REACTIONS (7)
  - Device malfunction [Unknown]
  - Poor quality device used [Unknown]
  - Product use in unapproved indication [Unknown]
  - Hypoacusis [Unknown]
  - Product use complaint [Unknown]
  - Wrong technique in device usage process [Unknown]
  - Device use confusion [Unknown]

NARRATIVE: CASE EVENT DATE: 202104
